FAERS Safety Report 25322685 (Version 1)
Quarter: 2025Q2

REPORT INFORMATION
  Report Type: Spontaneous
  Country: US (occurrence: US)
  Receive Date: 20250516
  Receipt Date: 20250516
  Transmission Date: 20250716
  Serious: No
  Sender: SANDOZ
  Company Number: US-002147023-NVSC2023US106230

PATIENT
  Sex: Male
  Weight: 117.93 kg

DRUGS (5)
  1. ALLOPURINOL [Suspect]
     Active Substance: ALLOPURINOL
     Indication: Product used for unknown indication
     Route: 065
  2. FLUOCINOLONE ACETONIDE [Suspect]
     Active Substance: FLUOCINOLONE ACETONIDE
     Indication: Product used for unknown indication
     Route: 061
  3. HYDROCORTISONE VALERATE [Suspect]
     Active Substance: HYDROCORTISONE VALERATE
     Indication: Product used for unknown indication
     Route: 061
  4. MINOCYCLINE HYDROCHLORIDE [Suspect]
     Active Substance: MINOCYCLINE HYDROCHLORIDE
     Indication: Product used for unknown indication
     Dosage: 50 MG, QD
     Route: 048
  5. TRIAMCINOLONE ACETONIDE [Suspect]
     Active Substance: TRIAMCINOLONE ACETONIDE
     Indication: Product used for unknown indication
     Route: 065

REACTIONS (20)
  - Psoriasis [Unknown]
  - Acne [Unknown]
  - Erythema [Unknown]
  - Neurodermatitis [Unknown]
  - Scratch [Unknown]
  - Skin lesion [Unknown]
  - Skin hypertrophy [Unknown]
  - Skin mass [Unknown]
  - Dysmenorrhoea [Unknown]
  - Nodule [Unknown]
  - Papule [Unknown]
  - Flushing [Unknown]
  - Sensitivity to weather change [Unknown]
  - Xerosis [Unknown]
  - Dry skin [Unknown]
  - Melanocytic naevus [Unknown]
  - Rash erythematous [Unknown]
  - Pruritus [Not Recovered/Not Resolved]
  - Rash [Not Recovered/Not Resolved]
  - Drug ineffective [Unknown]
